FAERS Safety Report 21669008 (Version 1)
Quarter: 2022Q4

REPORT INFORMATION
  Report Type: Spontaneous
  Country: US (occurrence: None)
  Receive Date: 20221201
  Receipt Date: 20221201
  Transmission Date: 20230112
  Serious: No
  Sender: FDA-Public Use
  Company Number: None

PATIENT
  Age: 52 Year
  Sex: Female
  Weight: 47.1 kg

DRUGS (1)
  1. TECVAYLI [Suspect]
     Active Substance: TECLISTAMAB-CQYV
     Indication: Plasma cell leukaemia
     Route: 058
     Dates: start: 20221123

REACTIONS (18)
  - Leukopenia [None]
  - Tachycardia [None]
  - Pyrexia [None]
  - Cytokine release syndrome [None]
  - Muscular weakness [None]
  - Muscular weakness [None]
  - Reflexes abnormal [None]
  - Unresponsive to stimuli [None]
  - Grimacing [None]
  - Pupillary reflex impaired [None]
  - Hypertension [None]
  - Headache [None]
  - Vomiting [None]
  - Dysgraphia [None]
  - Unresponsive to stimuli [None]
  - Dyschromatopsia [None]
  - Upper motor neurone lesion [None]
  - Somnolence [None]

NARRATIVE: CASE EVENT DATE: 20221124
